FAERS Safety Report 8344824-7 (Version None)
Quarter: 2012Q2

REPORT INFORMATION
  Report Type: 
  Country: None (occurrence: None)
  Receive Date: 20120508
  Receipt Date: 20120501
  Transmission Date: 20120825
  Serious: Yes (Hospitalization, Congenital Anomaly)
  Sender: FDA-Public Use
  Company Number: US-GLAXOSMITHKLINE-A0949402A

PATIENT
  Sex: Male

DRUGS (2)
  1. PAXIL [Suspect]
     Indication: PRODUCT USED FOR UNKNOWN INDICATION
     Dosage: 10MG PER DAY
     Route: 064
     Dates: start: 19970605
  2. MULTI-VITAMINS [Concomitant]

REACTIONS (6)
  - VENTRICULAR DYSFUNCTION [None]
  - MULTIPLE CONGENITAL ABNORMALITIES [None]
  - ATRIAL SEPTAL DEFECT [None]
  - SYNDACTYLY [None]
  - CONGENITAL HAND MALFORMATION [None]
  - FOETAL EXPOSURE DURING PREGNANCY [None]
